FAERS Safety Report 9564979 (Version 3)
Quarter: 2014Q1

REPORT INFORMATION
  Report Type: Spontaneous
  Country: US (occurrence: US)
  Receive Date: 20130930
  Receipt Date: 20140331
  Transmission Date: 20141002
  Serious: Yes (Other)
  Sender: FDA-Public Use
  Company Number: US-JNJFOC-20130914670

PATIENT
  Sex: Male

DRUGS (32)
  1. RISPERDAL [Suspect]
     Indication: SCHIZOAFFECTIVE DISORDER
     Route: 048
     Dates: start: 2007, end: 2011
  2. RISPERDAL [Suspect]
     Indication: PSYCHOTIC DISORDER
     Route: 048
     Dates: start: 2007, end: 2011
  3. RISPERDAL [Suspect]
     Indication: ATTENTION DEFICIT/HYPERACTIVITY DISORDER
     Route: 048
     Dates: start: 2007, end: 2011
  4. RISPERDAL [Suspect]
     Indication: BIPOLAR DISORDER
     Route: 048
     Dates: start: 2007, end: 2011
  5. RISPERDAL [Suspect]
     Indication: INTERMITTENT EXPLOSIVE DISORDER
     Route: 048
     Dates: start: 2007, end: 2011
  6. RISPERDAL [Suspect]
     Indication: OPPOSITIONAL DEFIANT DISORDER
     Route: 048
     Dates: start: 2007, end: 2011
  7. RISPERDAL CONSTA [Suspect]
     Indication: SCHIZOAFFECTIVE DISORDER
     Route: 030
     Dates: start: 2007, end: 2011
  8. RISPERDAL CONSTA [Suspect]
     Indication: PSYCHOTIC DISORDER
     Route: 030
     Dates: start: 2007, end: 2011
  9. RISPERDAL CONSTA [Suspect]
     Indication: ATTENTION DEFICIT/HYPERACTIVITY DISORDER
     Route: 030
     Dates: start: 2007, end: 2011
  10. RISPERDAL CONSTA [Suspect]
     Indication: BIPOLAR DISORDER
     Route: 030
     Dates: start: 2007, end: 2011
  11. RISPERDAL CONSTA [Suspect]
     Indication: INTERMITTENT EXPLOSIVE DISORDER
     Route: 030
     Dates: start: 2007, end: 2011
  12. RISPERDAL CONSTA [Suspect]
     Indication: OPPOSITIONAL DEFIANT DISORDER
     Route: 030
     Dates: start: 2007, end: 2011
  13. INVEGA SUSTENNA [Suspect]
     Indication: SCHIZOAFFECTIVE DISORDER
     Route: 030
     Dates: start: 2011, end: 2013
  14. INVEGA SUSTENNA [Suspect]
     Indication: SCHIZOAFFECTIVE DISORDER
     Route: 030
  15. INVEGA SUSTENNA [Suspect]
     Indication: PSYCHOTIC DISORDER
     Route: 030
  16. INVEGA SUSTENNA [Suspect]
     Indication: PSYCHOTIC DISORDER
     Route: 030
     Dates: start: 2011, end: 2013
  17. DEPAKOTE [Concomitant]
     Indication: BIPOLAR DISORDER
     Route: 065
  18. DEPAKOTE [Concomitant]
     Indication: SCHIZOAFFECTIVE DISORDER
     Route: 065
  19. DEPAKOTE [Concomitant]
     Indication: PSYCHOTIC DISORDER
     Route: 065
  20. DEPAKOTE [Concomitant]
     Indication: INTERMITTENT EXPLOSIVE DISORDER
     Route: 065
  21. DEPAKOTE [Concomitant]
     Indication: OPPOSITIONAL DEFIANT DISORDER
     Route: 065
  22. DEPAKOTE [Concomitant]
     Indication: ATTENTION DEFICIT/HYPERACTIVITY DISORDER
     Route: 065
  23. TENEX [Concomitant]
     Indication: PSYCHOTIC DISORDER
     Route: 065
  24. TENEX [Concomitant]
     Indication: SCHIZOAFFECTIVE DISORDER
     Route: 065
  25. TENEX [Concomitant]
     Indication: INTERMITTENT EXPLOSIVE DISORDER
     Route: 065
  26. TENEX [Concomitant]
     Indication: OPPOSITIONAL DEFIANT DISORDER
     Route: 065
  27. TENEX [Concomitant]
     Indication: ATTENTION DEFICIT/HYPERACTIVITY DISORDER
     Route: 065
  28. METADATE [Concomitant]
     Indication: PSYCHOTIC DISORDER
     Route: 065
  29. METADATE [Concomitant]
     Indication: SCHIZOAFFECTIVE DISORDER
     Route: 065
  30. METADATE [Concomitant]
     Indication: INTERMITTENT EXPLOSIVE DISORDER
     Route: 065
  31. METADATE [Concomitant]
     Indication: OPPOSITIONAL DEFIANT DISORDER
     Route: 065
  32. METADATE [Concomitant]
     Indication: ATTENTION DEFICIT/HYPERACTIVITY DISORDER
     Route: 065

REACTIONS (8)
  - Glucose tolerance impaired [Unknown]
  - Acne [Unknown]
  - Gynaecomastia [Unknown]
  - Emotional disorder [Unknown]
  - Obesity [Unknown]
  - Blood triglycerides increased [Unknown]
  - Breast pain [Unknown]
  - Breast tenderness [Unknown]
